FAERS Safety Report 12778372 (Version 2)
Quarter: 2016Q4

REPORT INFORMATION
  Report Type: Spontaneous
  Country: DE (occurrence: DE)
  Receive Date: 20160926
  Receipt Date: 20161104
  Transmission Date: 20170207
  Serious: Yes (Other)
  Sender: FDA-Public Use
  Company Number: DE-BRISTOL-MYERS SQUIBB COMPANY-BMS-2016-077473

PATIENT
  Age: 70 Year
  Sex: Male
  Weight: 72.6 kg

DRUGS (1)
  1. OPDIVO [Suspect]
     Active Substance: NIVOLUMAB
     Indication: SQUAMOUS CELL CARCINOMA
     Dosage: UNK
     Route: 065
     Dates: end: 201608

REACTIONS (4)
  - Haemoptysis [Unknown]
  - Neoplasm progression [Unknown]
  - Tumour haemorrhage [Unknown]
  - Lymphoma [Unknown]
